FAERS Safety Report 7478851-9 (Version None)
Quarter: 2011Q2

REPORT INFORMATION
  Report Type: 
  Country: None (occurrence: None)
  Receive Date: 20110513
  Receipt Date: 20110505
  Transmission Date: 20111010
  Serious: Yes (Hospitalization, Other)
  Sender: FDA-Public Use
  Company Number: IT-SANOFI-AVENTIS-2011SA028781

PATIENT

DRUGS (3)
  1. TUMOR NECROSIS FACTOR RECEPTOR - IGG1 [Suspect]
     Route: 042
  2. OXALIPLATIN [Suspect]
     Route: 042
  3. CAPECITABINE [Suspect]
     Route: 048

REACTIONS (9)
  - FATIGUE [None]
  - HYPERURICAEMIA [None]
  - VOMITING [None]
  - DIARRHOEA [None]
  - GAMMA-GLUTAMYLTRANSFERASE INCREASED [None]
  - PARAESTHESIA [None]
  - HYPERGLYCAEMIA [None]
  - HYPERSENSITIVITY [None]
  - DECREASED APPETITE [None]
